FAERS Safety Report 24448915 (Version 2)
Quarter: 2024Q4

REPORT INFORMATION
  Report Type: Spontaneous
  Country: US (occurrence: US)
  Receive Date: 20241017
  Receipt Date: 20241101
  Transmission Date: 20250114
  Serious: Yes (Other)
  Sender: TEVA
  Company Number: US-TEVA-VS-3253917

PATIENT
  Age: 63 Year
  Sex: Female

DRUGS (4)
  1. FLUOROURACIL [Suspect]
     Active Substance: FLUOROURACIL
     Indication: Pancreatic carcinoma metastatic
     Dosage: 5-FLUOROURACIL, STARTED RECEIVING TREATMENT UNDER FIRST LINE FOLFIRINOX REGIMEN
     Route: 065
     Dates: start: 202310
  2. IRINOTECAN [Suspect]
     Active Substance: IRINOTECAN
     Indication: Pancreatic carcinoma metastatic
     Dosage: STARTED RECEIVING TREATMENT UNDER FIRST LINE FOLFIRINOX REGIMEN
     Route: 065
     Dates: start: 202310
  3. OXALIPLATIN [Suspect]
     Active Substance: OXALIPLATIN
     Indication: Pancreatic carcinoma metastatic
     Dosage: STARTED RECEIVING TREATMENT UNDER FIRST LINE FOLFIRINOX REGIMEN
     Route: 065
     Dates: start: 202310
  4. LEUCOVORIN [Suspect]
     Active Substance: LEUCOVORIN\LEUCOVORIN CALCIUM
     Indication: Pancreatic carcinoma metastatic
     Dosage: STARTED RECEIVING TREATMENT UNDER FIRST LINE FOLFIRINOX REGIMEN
     Route: 065
     Dates: start: 202310

REACTIONS (1)
  - Neutropenia [Unknown]
